FAERS Safety Report 5090982-X (Version None)
Quarter: 2006Q3

REPORT INFORMATION
  Report Type: 
  Country: None (occurrence: None)
  Receive Date: 20060727
  Receipt Date: 20060503
  Transmission Date: 20061208
  Serious: Yes (Other)
  Sender: FDA-Public Use
  Company Number: 2006060068

PATIENT
  Age: 54 Year
  Sex: Male

DRUGS (4)
  1. LYRICA [Suspect]
     Indication: FIBROMYALGIA
  2. AMBIEN [Concomitant]
  3. NASOEX (MOMETASONE FUROATE) [Concomitant]
  4. SKELAXIN [Concomitant]

REACTIONS (1)
  - VISION BLURRED [None]
